FAERS Safety Report 7500881-9 (Version None)
Quarter: 2011Q2

REPORT INFORMATION
  Report Type: 
  Country: None (occurrence: None)
  Receive Date: 20110524
  Receipt Date: 20110516
  Transmission Date: 20111010
  Serious: Yes (Hospitalization)
  Sender: FDA-Public Use
  Company Number: B0708280A

PATIENT
  Sex: Female

DRUGS (1)
  1. RELENZA [Suspect]
     Indication: INFLUENZA
     Dosage: 20MG PER DAY
     Route: 055
     Dates: start: 20110317, end: 20110320

REACTIONS (5)
  - DRUG ERUPTION [None]
  - RASH [None]
  - ILL-DEFINED DISORDER [None]
  - ORAL DISORDER [None]
  - ERYTHEMA [None]
